FAERS Safety Report 14307881 (Version 2)
Quarter: 2017Q4

REPORT INFORMATION
  Report Type: Spontaneous
  Country: US (occurrence: US)
  Receive Date: 20171220
  Receipt Date: 20171228
  Transmission Date: 20180321
  Serious: No
  Sender: FDA-Public Use
  Company Number: US-HORIZON-DUE-0227-2017

PATIENT
  Age: 93 Year
  Sex: Female

DRUGS (1)
  1. DUEXIS [Suspect]
     Active Substance: FAMOTIDINE\IBUPROFEN
     Indication: ARTHRITIS
     Dosage: STARTED WITH 2 PILLS DAILY AND THEN TOOK 3 PILLS DAILY
     Dates: start: 20171209

REACTIONS (3)
  - Fall [Recovering/Resolving]
  - Off label use [Unknown]
  - Pain [Unknown]

NARRATIVE: CASE EVENT DATE: 201712
